FAERS Safety Report 4667392-X (Version None)
Quarter: 2005Q2

REPORT INFORMATION
  Report Type: 
  Country: None (occurrence: None)
  Receive Date: 20050520
  Receipt Date: 20041026
  Transmission Date: 20051028
  Serious: Yes (Other)
  Sender: FDA-Public Use
  Company Number: PHEH2004US11580

PATIENT
  Age: 60 Year
  Sex: Male

DRUGS (2)
  1. STEROIDS NOS [Concomitant]
  2. ZOMETA [Suspect]
     Indication: METASTASES TO BONE
     Route: 042

REACTIONS (1)
  - OSTEONECROSIS [None]
